FAERS Safety Report 8436485-3 (Version None)
Quarter: 2012Q2

REPORT INFORMATION
  Report Type: 
  Country: None (occurrence: None)
  Receive Date: 20120614
  Receipt Date: 20120607
  Transmission Date: 20120825
  Serious: Yes (Hospitalization)
  Sender: FDA-Public Use
  Company Number: US-GLAXOSMITHKLINE-A0800706A

PATIENT
  Age: 60 Year
  Sex: Female
  Weight: 162.7 kg

DRUGS (6)
  1. ZOCOR [Concomitant]
  2. AVANDIA [Suspect]
     Indication: DIABETES MELLITUS
     Dosage: 4MG PER DAY
     Route: 048
     Dates: start: 20040701, end: 20070801
  3. INSULIN [Concomitant]
  4. ATENOLOL [Concomitant]
  5. PREMARIN [Concomitant]
  6. IMIPRAMINE HCL [Concomitant]

REACTIONS (5)
  - HEART INJURY [None]
  - RENAL FAILURE [None]
  - RENAL FAILURE ACUTE [None]
  - CARDIAC FAILURE CONGESTIVE [None]
  - CHRONIC OBSTRUCTIVE PULMONARY DISEASE [None]
